FAERS Safety Report 15296589 (Version 2)
Quarter: 2018Q3

REPORT INFORMATION
  Report Type: Spontaneous
  Country: FR (occurrence: FR)
  Receive Date: 20180820
  Receipt Date: 20180828
  Transmission Date: 20181010
  Serious: Yes (Other)
  Sender: FDA-Public Use
  Company Number: PHHY2018FR075247

PATIENT
  Sex: Male

DRUGS (3)
  1. ZYKADIA [Suspect]
     Active Substance: CERITINIB
     Dosage: 450 MG, QD (DURING MEAL)
     Route: 065
  2. ZYKADIA [Suspect]
     Active Substance: CERITINIB
     Indication: ADENOCARCINOMA
     Dosage: 600 MG, QD (FASTED)
     Route: 065
     Dates: end: 201801
  3. ZYKADIA [Suspect]
     Active Substance: CERITINIB
     Dosage: 750 MG, QD (FASTED)
     Route: 065
     Dates: start: 201801

REACTIONS (4)
  - Gastrointestinal disorder [Unknown]
  - Eye pain [Unknown]
  - Eye pruritus [Unknown]
  - Cancer pain [Recovered/Resolved]

NARRATIVE: CASE EVENT DATE: 20180720
